FAERS Safety Report 13077752 (Version 1)
Quarter: 2017Q1

REPORT INFORMATION
  Report Type: Report from Study
  Country: US (occurrence: US)
  Receive Date: 20170101
  Receipt Date: 20170101
  Transmission Date: 20170428
  Serious: Yes (Other)
  Sender: FDA-Public Use
  Company Number: US-MALLINCKRODT-T201606691

PATIENT
  Sex: Male
  Weight: 77 kg

DRUGS (2)
  1. REPOSITORY CORTICOTROPIN INJECTION [Suspect]
     Active Substance: CORTICOTROPIN
     Indication: NEPHROTIC SYNDROME
     Dosage: 0.5 ML 4 TIMES PER WEEK
     Route: 058
     Dates: start: 20161126, end: 20161210
  2. REPOSITORY CORTICOTROPIN INJECTION [Suspect]
     Active Substance: CORTICOTROPIN
     Indication: PROTEINURIA
     Dosage: 1 ML X 3 / 80 UNITS/ML 2 TIMES PER WEEK
     Route: 058
     Dates: end: 20161210

REACTIONS (11)
  - Feeling abnormal [Unknown]
  - Oedema peripheral [Not Recovered/Not Resolved]
  - Blood pressure increased [Not Recovered/Not Resolved]
  - Hiccups [Not Recovered/Not Resolved]
  - Fluid retention [Not Recovered/Not Resolved]
  - Vertigo [Not Recovered/Not Resolved]
  - Mental impairment [Unknown]
  - Increased appetite [Not Recovered/Not Resolved]
  - Vomiting [Not Recovered/Not Resolved]
  - Weight increased [Not Recovered/Not Resolved]
  - Headache [Not Recovered/Not Resolved]

NARRATIVE: CASE EVENT DATE: 2016
